FAERS Safety Report 13402855 (Version 1)
Quarter: 2017Q2

REPORT INFORMATION
  Report Type: Spontaneous
  Country: US (occurrence: US)
  Receive Date: 20170404
  Receipt Date: 20170404
  Transmission Date: 20170830
  Serious: No
  Sender: FDA-Public Use
  Company Number: US-ROCHE-1828673

PATIENT
  Sex: Female

DRUGS (3)
  1. KADCYLA [Suspect]
     Active Substance: ADO-TRASTUZUMAB EMTANSINE
     Indication: BREAST CANCER METASTATIC
     Route: 065
     Dates: start: 201209
  2. LUPRON [Concomitant]
     Active Substance: LEUPROLIDE ACETATE
     Dosage: A SHOT IN THE BUTT
     Route: 065
  3. ANASTROZOL [Concomitant]
     Active Substance: ANASTROZOLE

REACTIONS (5)
  - Neuropathy peripheral [Unknown]
  - Neuralgia [Unknown]
  - Nausea [Unknown]
  - Peripheral nerve injury [Unknown]
  - Fatigue [Unknown]
